FAERS Safety Report 6387245-9 (Version None)
Quarter: 2009Q3

REPORT INFORMATION
  Report Type: 
  Country: None (occurrence: None)
  Receive Date: 20090928
  Receipt Date: 20090911
  Transmission Date: 20100115
  Serious: Yes (Hospitalization)
  Sender: FDA-Public Use
  Company Number: SPV1-2009-01892

PATIENT
  Sex: Male

DRUGS (1)
  1. ELAPRASE [Suspect]
     Dosage: IV DRIP
     Route: 041

REACTIONS (2)
  - LOWER LIMB FRACTURE [None]
  - SPORTS INJURY [None]
